FAERS Safety Report 9209438 (Version 1)
Quarter: 2013Q1

REPORT INFORMATION
  Report Type: Spontaneous
  Country: US (occurrence: None)
  Receive Date: 20120727
  Receipt Date: 20120727
  Transmission Date: 20140127
  Serious: Yes (Hospitalization)
  Sender: FDA-Public Use
  Company Number: US-JNJFOC-20110908298

PATIENT
  Age: 68 Year
  Sex: Male
  Weight: 57.61 kg

DRUGS (21)
  1. IMODIUM [Suspect]
     Indication: PROPHYLAXIS
     Dosage: STOPPED
     Route: 048
  2. DOCETAXEL [Suspect]
     Indication: PROSTATE CANCER METASTATIC
  3. OGX-011 [Suspect]
     Indication: PROSTATE CANCER METASTATIC
     Dates: start: 20110716
  4. IBUPROFEN (IBUPROFEN) UNSPECIFIED [Concomitant]
  5. ALLOPURINOL [Concomitant]
  6. TERAZOSIN HYDROCHLORIDE (TERAZOSIN HYDROCHLORIDE) [Concomitant]
  7. LORAZEPAM (LORAZEPAM) [Concomitant]
  8. FEXOFENADINE [Concomitant]
  9. OMEGA FISH OILS (FISH OIL) [Concomitant]
  10. LEVOTHYROXINE (LEVOTHYROXINE) [Concomitant]
  11. HYZAAR (HYZAAR/01284801/) [Concomitant]
  12. MINOCYCLINE (MINOCYCLINE) [Concomitant]
  13. POTASSIUM CHLORIDE (POTASSIUM CHLORIDE) [Concomitant]
  14. PREDNISONE (PREDNISONE) [Concomitant]
  15. PROCHLORPERAZINE MALEATE (PROCHLORPERAZINE MALEATE) [Concomitant]
  16. UNKNOWN MEDICATION (ALL OTHER THERAPEUTIC PRODUCTS) [Concomitant]
  17. SIMVASTATIN (SIMVASTATIN) [Concomitant]
  18. DOCUSATE SODIUM (DOCUSATE SODIUM) [Concomitant]
  19. TAMSULOSIN (TAMSULOSIN) [Concomitant]
  20. AMITRIPTYLINE (AMITRIPTYLINE) [Concomitant]
  21. LEUPRORELIN ACETATE (LEUPROLIDE ACETATE) UNSPECIFIED [Concomitant]

REACTIONS (1)
  - Constipation [None]
